FAERS Safety Report 9454108 (Version 4)
Quarter: 2014Q2

REPORT INFORMATION
  Report Type: Spontaneous
  Country: US (occurrence: None)
  Receive Date: 20130807
  Receipt Date: 20140620
  Transmission Date: 20141212
  Serious: Yes (Hospitalization, Congenital Anomaly)
  Sender: FDA-Public Use
  Company Number: SYM-2013-07588

PATIENT
  Age: 0 Day
  Sex: Male

DRUGS (1)
  1. WELLBUTRIN XL [Suspect]
     Indication: PRODUCT USED FOR UNKNOWN INDICATION
     Route: 064
     Dates: start: 20090223

REACTIONS (7)
  - Maternal drugs affecting foetus [None]
  - Hypoplastic right heart syndrome [None]
  - Foetal exposure during pregnancy [None]
  - Heart transplant [None]
  - Atrial septal defect [None]
  - Congenital tricuspid valve atresia [None]
  - Congenital pulmonary valve atresia [None]
